FAERS Safety Report 17041813 (Version 1)
Quarter: 2019Q4

REPORT INFORMATION
  Report Type: Report from Study
  Country: JP (occurrence: JP)
  Receive Date: 20191118
  Receipt Date: 20191118
  Transmission Date: 20200122
  Serious: Yes (Hospitalization, Other)
  Sender: FDA-Public Use
  Company Number: JP-ACTELION-A-CH2018-180209

PATIENT
  Age: 68 Year
  Sex: Female

DRUGS (13)
  1. BERASUS [Concomitant]
     Active Substance: BERAPROST SODIUM
  2. OXYGEN. [Concomitant]
     Active Substance: OXYGEN
  3. PREDONINE [Concomitant]
     Active Substance: PREDNISOLONE
  4. BENET [Concomitant]
     Active Substance: RISEDRONATE SODIUM
  5. LIVACT [Concomitant]
     Active Substance: AMINO ACIDS, SOURCE UNSPECIFIED
  6. DAIPHEN [Concomitant]
     Active Substance: SULFAMETHOXAZOLE\TRIMETHOPRIM
  7. ADCIRCA [Concomitant]
     Active Substance: TADALAFIL
  8. UPTRAVI [Concomitant]
     Active Substance: SELEXIPAG
  9. BERIZYM [Concomitant]
     Active Substance: CELLULASE\DIASTASE\LIPASE
  10. TEPRENONE [Concomitant]
     Active Substance: TEPRENONE
  11. URSO [Concomitant]
     Active Substance: URSODIOL
  12. OPSUMIT [Suspect]
     Active Substance: MACITENTAN
     Indication: PULMONARY ARTERIAL HYPERTENSION
     Dosage: 10 MG, QD
     Route: 048
     Dates: start: 20160719
  13. NEXIUM [Concomitant]
     Active Substance: ESOMEPRAZOLE MAGNESIUM

REACTIONS (12)
  - Supraventricular extrasystoles [Recovering/Resolving]
  - Pyrexia [Recovered/Resolved]
  - Ascites [Not Recovered/Not Resolved]
  - Malaise [Recovered/Resolved]
  - Blood alkaline phosphatase increased [Recovering/Resolving]
  - Pneumonia [Recovered/Resolved]
  - Inflammation [Recovered/Resolved]
  - Respiratory distress [Recovered/Resolved]
  - Hepatic cirrhosis [Not Recovered/Not Resolved]
  - Intraductal papillary mucinous neoplasm [Not Recovered/Not Resolved]
  - Anaemia [Recovered/Resolved]
  - Ventricular extrasystoles [Recovering/Resolving]

NARRATIVE: CASE EVENT DATE: 20170325
